FAERS Safety Report 16965213 (Version 2)
Quarter: 2020Q1

REPORT INFORMATION
  Report Type: Spontaneous
  Country: US (occurrence: US)
  Receive Date: 20191028
  Receipt Date: 20200113
  Transmission Date: 20200409
  Serious: Yes (Death, Hospitalization, Other)
  Sender: FDA-Public Use
  Company Number: US-SA-2019SA264239

PATIENT
  Age: 54 Year
  Sex: Male
  Weight: 79.37 kg

DRUGS (1)
  1. DUPIXENT [Suspect]
     Active Substance: DUPILUMAB
     Dosage: 300 MG, QOW
     Route: 058

REACTIONS (5)
  - Hepatic haemorrhage [Fatal]
  - Cardiac arrest [Fatal]
  - Squamous cell carcinoma [Fatal]
  - Hepatic cancer metastatic [Fatal]
  - Hepatic artery aneurysm [Fatal]

NARRATIVE: CASE EVENT DATE: 201901
